FAERS Safety Report 8170547-3 (Version None)
Quarter: 2012Q1

REPORT INFORMATION
  Report Type: 
  Country: None (occurrence: None)
  Receive Date: 20120228
  Receipt Date: 20120226
  Transmission Date: 20120608
  Serious: Yes (Other)
  Sender: FDA-Public Use
  Company Number: IL-ROCHE-1043397

PATIENT
  Sex: Female

DRUGS (2)
  1. RIBAVIRIN [Suspect]
     Indication: HEPATITIS C
     Route: 065
  2. PEGASYS [Suspect]
     Indication: HEPATITIS C
     Route: 065

REACTIONS (1)
  - DEEP VEIN THROMBOSIS [None]
